FAERS Safety Report 4657538-1 (Version None)
Quarter: 2005Q2

REPORT INFORMATION
  Report Type: 
  Country: None (occurrence: None)
  Receive Date: 20050405
  Receipt Date: 20041213
  Transmission Date: 20051028
  Serious: Yes (Hospitalization, Other)
  Sender: FDA-Public Use
  Company Number: 2004081963

PATIENT
  Sex: Female

DRUGS (4)
  1. GEODON [Suspect]
     Indication: MANIA
     Dosage: 160 MG (80 MG,2 IN 1 D),ORAL
     Route: 048
     Dates: start: 20040126, end: 20040301
  2. LITHIUM CARBONATE [Concomitant]
  3. CLONAZEPAM [Concomitant]
  4. QUETIAPINE FUMARATE [Concomitant]

REACTIONS (2)
  - AKATHISIA [None]
  - RESTLESS LEGS SYNDROME [None]
